FAERS Safety Report 6169177-4 (Version None)
Quarter: 2009Q2

REPORT INFORMATION
  Report Type: 
  Country: None (occurrence: None)
  Receive Date: 20090427
  Receipt Date: 20090417
  Transmission Date: 20091009
  Serious: Yes (Other)
  Sender: FDA-Public Use
  Company Number: IE-ASTRAZENECA-2009GB00930

PATIENT
  Age: 41 Year
  Sex: Male

DRUGS (5)
  1. NEXIUM [Suspect]
     Route: 048
     Dates: start: 20071201, end: 20080101
  2. CLOZARIL [Suspect]
     Indication: SCHIZOPHRENIA
     Dosage: DAILY
     Route: 048
     Dates: start: 20071214, end: 20080101
  3. ZOLPIDEM [Suspect]
     Indication: SEDATIVE THERAPY
     Route: 048
     Dates: start: 20071201, end: 20080101
  4. RISPERIDONE [Suspect]
     Indication: PSYCHOTIC DISORDER
     Route: 048
     Dates: start: 20071201, end: 20080101
  5. EPILIM CHRONO [Suspect]
     Indication: AFFECTIVE DISORDER
     Route: 048
     Dates: start: 20071201, end: 20080101

REACTIONS (6)
  - CONFUSIONAL STATE [None]
  - DRUG INEFFECTIVE [None]
  - ELECTROCARDIOGRAM [None]
  - ELECTROCARDIOGRAM ABNORMAL [None]
  - PYREXIA [None]
  - VIRAL INFECTION [None]
